FAERS Safety Report 19030590 (Version 1)
Quarter: 2021Q1

REPORT INFORMATION
  Report Type: Spontaneous
  Country: US (occurrence: US)
  Receive Date: 20210318
  Receipt Date: 20210318
  Transmission Date: 20210420
  Serious: No
  Sender: FDA-Public Use
  Company Number: None

PATIENT
  Age: 30 Year
  Sex: Female
  Weight: 83.91 kg

DRUGS (4)
  1. CLINDAMYCIN PHOSPHATE, TOPICAL 1% LOTION [Concomitant]
  2. PARAGARD T 380A [Suspect]
     Active Substance: COPPER
  3. NEXPLANON [Suspect]
     Active Substance: ETONOGESTREL
  4. MULTIVITAMIN [Concomitant]
     Active Substance: VITAMINS

REACTIONS (7)
  - Haemorrhage [None]
  - Emotional disorder [None]
  - Stress [None]
  - Exposure during pregnancy [None]
  - Abortion [None]
  - Mood swings [None]
  - Pregnancy with contraceptive device [None]

NARRATIVE: CASE EVENT DATE: 20200217
